FAERS Safety Report 16803564 (Version 1)
Quarter: 2019Q3

REPORT INFORMATION
  Report Type: Spontaneous
  Country: US (occurrence: US)
  Receive Date: 20190913
  Receipt Date: 20190913
  Transmission Date: 20191005
  Serious: No
  Sender: FDA-Public Use
  Company Number: US-ASTRAZENECA-2019SF17355

PATIENT
  Sex: Male

DRUGS (1)
  1. CRESTOR [Suspect]
     Active Substance: ROSUVASTATIN CALCIUM
     Dosage: UNKNOWN
     Route: 048

REACTIONS (6)
  - Abdominal pain upper [Unknown]
  - Myalgia [Unknown]
  - Diabetes mellitus [Unknown]
  - Headache [Unknown]
  - Therapy cessation [Unknown]
  - Asthenia [Unknown]
